FAERS Safety Report 4733542-X (Version None)
Quarter: 2005Q3

REPORT INFORMATION
  Report Type: 
  Country: None (occurrence: None)
  Receive Date: 20050729
  Receipt Date: 20050720
  Transmission Date: 20060218
  Serious: Yes (Death)
  Sender: FDA-Public Use
  Company Number: 230008M05ESP

PATIENT
  Age: 18 Year
  Sex: Male

DRUGS (1)
  1. REBIF [Suspect]
     Indication: EPILEPSY

REACTIONS (3)
  - COMA [None]
  - ENCEPHALOPATHY [None]
  - RHABDOMYOLYSIS [None]
